FAERS Safety Report 23368044 (Version 1)
Quarter: 2024Q1

REPORT INFORMATION
  Report Type: Spontaneous
  Country: US (occurrence: US)
  Receive Date: 20240105
  Receipt Date: 20240105
  Transmission Date: 20240410
  Serious: Yes (Other)
  Sender: FDA-Public Use
  Company Number: US-INGENUS PHARMACEUTICALS, LLC-2023INF000068

PATIENT
  Age: 62 Year
  Sex: Female

DRUGS (3)
  1. ARSENIC TRIOXIDE [Suspect]
     Active Substance: ARSENIC TRIOXIDE
     Indication: Acute promyelocytic leukaemia
     Dosage: 0.15 MILLIGRAM/KILOGRAM PER WEEK
     Route: 065
  2. ARSENIC TRIOXIDE [Suspect]
     Active Substance: ARSENIC TRIOXIDE
     Dosage: 0.10 MILLIGRAM/KILOGRAM
     Route: 065
  3. TRETINOIN [Suspect]
     Active Substance: TRETINOIN
     Indication: Acute promyelocytic leukaemia
     Dosage: 45MG/M2/DAY, PER WEEK
     Route: 065

REACTIONS (2)
  - Myopericarditis [Recovered/Resolved]
  - Differentiation syndrome [Recovered/Resolved]
